FAERS Safety Report 6099002-1 (Version None)
Quarter: 2009Q1

REPORT INFORMATION
  Report Type: 
  Country: None (occurrence: None)
  Receive Date: 20090302
  Receipt Date: 20090216
  Transmission Date: 20090719
  Serious: Yes (Hospitalization, Other)
  Sender: FDA-Public Use
  Company Number: US-ROCHE-438838

PATIENT
  Sex: Female
  Weight: 49.9 kg

DRUGS (4)
  1. ACCUTANE [Suspect]
     Indication: ACNE
     Route: 048
     Dates: start: 19930801
  2. ACCUTANE [Suspect]
     Route: 048
     Dates: start: 19940127, end: 19940713
  3. REMICADE [Suspect]
     Indication: CROHN'S DISEASE
     Route: 065
     Dates: end: 20080101
  4. SELDANE [Concomitant]

REACTIONS (17)
  - ANAEMIA [None]
  - ANXIETY [None]
  - BLOOD CHOLESTEROL INCREASED [None]
  - BURNING MOUTH SYNDROME [None]
  - CLOSTRIDIUM DIFFICILE COLITIS [None]
  - COLITIS [None]
  - CROHN'S DISEASE [None]
  - DEPRESSION [None]
  - DRY SKIN [None]
  - EYELID PAIN [None]
  - GASTROENTERITIS [None]
  - HAEMORRHOIDS [None]
  - INFLAMMATORY BOWEL DISEASE [None]
  - NIGHT BLINDNESS [None]
  - PANCYTOPENIA [None]
  - PEPTIC ULCER [None]
  - SMALL INTESTINAL OBSTRUCTION [None]
